FAERS Safety Report 7433019-7 (Version None)
Quarter: 2011Q2

REPORT INFORMATION
  Report Type: 
  Country: None (occurrence: None)
  Receive Date: 20110422
  Receipt Date: 20110421
  Transmission Date: 20111010
  Serious: Yes (Hospitalization, Other)
  Sender: FDA-Public Use
  Company Number: DE-ABBOTT-11P-062-0713160-00

PATIENT
  Sex: Male

DRUGS (3)
  1. CORTISON [Concomitant]
     Indication: RHEUMATOID ARTHRITIS
  2. HUMIRA [Suspect]
     Indication: RHEUMATOID ARTHRITIS
     Route: 058
     Dates: start: 20100121
  3. HUMIRA [Suspect]

REACTIONS (3)
  - PNEUMONIA [None]
  - INTRACARDIAC THROMBUS [None]
  - ANGINA PECTORIS [None]
